FAERS Safety Report 7136175-3 (Version None)
Quarter: 2010Q4

REPORT INFORMATION
  Report Type: 
  Country: None (occurrence: None)
  Receive Date: 20101206
  Receipt Date: 20101126
  Transmission Date: 20110411
  Serious: Yes (Death, Hospitalization)
  Sender: FDA-Public Use
  Company Number: ES-BIOGENIDEC-2010BI017108

PATIENT
  Age: 49 Year
  Sex: Male

DRUGS (8)
  1. TYSABRI [Suspect]
     Indication: MULTIPLE SCLEROSIS
     Route: 042
     Dates: start: 20071029, end: 20100426
  2. TYSABRI [Suspect]
     Route: 042
     Dates: start: 20100510, end: 20100101
  3. ESCITALOPRAM [Concomitant]
     Indication: DEPRESSION
     Dates: start: 20080101
  4. MIRTAZAPINE [Concomitant]
  5. GRANISETRON HCL [Concomitant]
  6. LIORESAL [Concomitant]
  7. NEURONTIN [Concomitant]
  8. LYRICA [Concomitant]

REACTIONS (6)
  - CARDIOPULMONARY FAILURE [None]
  - IMMUNE RECONSTITUTION SYNDROME [None]
  - MULTIPLE SCLEROSIS RELAPSE [None]
  - PHLEBITIS [None]
  - PROGRESSIVE MULTIFOCAL LEUKOENCEPHALOPATHY [None]
  - PYREXIA [None]
